FAERS Safety Report 7926728-4 (Version None)
Quarter: 2011Q4

REPORT INFORMATION
  Report Type: 
  Country: None (occurrence: None)
  Receive Date: 20111118
  Receipt Date: 20111109
  Transmission Date: 20120403
  Serious: Yes (Hospitalization)
  Sender: FDA-Public Use
  Company Number: US-JNJFOC-20111103864

PATIENT
  Sex: Female
  Weight: 61.24 kg

DRUGS (11)
  1. REMICADE [Suspect]
     Route: 042
     Dates: start: 20110915, end: 20111001
  2. REMICADE [Suspect]
     Indication: SARCOIDOSIS
     Route: 042
     Dates: start: 20100101, end: 20110201
  3. REMICADE [Suspect]
     Route: 042
     Dates: start: 20090901, end: 20100101
  4. REMICADE [Suspect]
     Route: 042
     Dates: start: 20110915, end: 20111001
  5. BYSTOLIC [Concomitant]
  6. REMICADE [Suspect]
     Route: 042
     Dates: start: 20090901, end: 20100101
  7. REMICADE [Suspect]
     Indication: RHEUMATOID ARTHRITIS
     Route: 042
     Dates: start: 20100101, end: 20110201
  8. ZYRTEC [Concomitant]
  9. LISINOPRIL [Concomitant]
  10. METHOTREXATE [Concomitant]
  11. FOLIC ACID [Concomitant]

REACTIONS (10)
  - RENAL DISORDER [None]
  - PNEUMONIA [None]
  - PLEURISY [None]
  - PLEURAL EFFUSION [None]
  - CYSTITIS [None]
  - SEPSIS [None]
  - CARDIAC DISORDER [None]
  - RHEUMATOID ARTHRITIS [None]
  - DRUG EFFECT DECREASED [None]
  - ASTHENIA [None]
